FAERS Safety Report 7111308-3 (Version None)
Quarter: 2010Q4

REPORT INFORMATION
  Report Type: 
  Country: None (occurrence: None)
  Receive Date: 20101118
  Receipt Date: 20091130
  Transmission Date: 20110411
  Serious: No
  Sender: FDA-Public Use
  Company Number: US-TEVA-217020USA

PATIENT
  Sex: Female
  Weight: 55.388 kg

DRUGS (3)
  1. ALBUTEROL SULFATE AUTOHALER [Suspect]
     Route: 055
     Dates: start: 20091104
  2. PREDNISONE [Concomitant]
  3. TAMIFLU [Concomitant]

REACTIONS (1)
  - SENSATION OF FOREIGN BODY [None]
